FAERS Safety Report 9632653 (Version 1)
Quarter: 2013Q4

REPORT INFORMATION
  Report Type: Spontaneous
  Country: FR (occurrence: FR)
  Receive Date: 20131018
  Receipt Date: 20131018
  Transmission Date: 20140711
  Serious: Yes (Hospitalization)
  Sender: FDA-Public Use
  Company Number: FR-GLAXOSMITHKLINE-B0929345A

PATIENT
  Age: 85 Year
  Sex: Female

DRUGS (3)
  1. ARIXTRA [Suspect]
     Indication: DEEP VEIN THROMBOSIS
     Dosage: 7.5MG PER DAY
     Route: 058
     Dates: start: 201309, end: 20130911
  2. XARELTO [Suspect]
     Indication: PRODUCT USED FOR UNKNOWN INDICATION
     Dosage: 20MG PER DAY
     Route: 048
     Dates: start: 201307, end: 20130911
  3. CORTICOSTEROIDS [Concomitant]
     Route: 042
     Dates: start: 201309

REACTIONS (4)
  - Muscle haemorrhage [Recovered/Resolved]
  - Drug interaction [Unknown]
  - Oedema peripheral [Unknown]
  - Compartment syndrome [Unknown]
